FAERS Safety Report 17032502 (Version 1)
Quarter: 2019Q4

REPORT INFORMATION
  Report Type: Report from Study
  Country: DE (occurrence: DE)
  Receive Date: 20191114
  Receipt Date: 20191114
  Transmission Date: 20200122
  Serious: Yes (Death, Life-Threatening, Hospitalization, Other)
  Sender: FDA-Public Use
  Company Number: PHHY2018DE029102

PATIENT
  Age: 76 Year
  Sex: Male
  Weight: 55 kg

DRUGS (15)
  1. PEMBROLIZUMAB. [Suspect]
     Active Substance: PEMBROLIZUMAB
     Indication: MALIGNANT MELANOMA
     Dosage: 110 OR 120 MG, QMO (ONCE A MONTH)
     Route: 042
     Dates: start: 20170425
  2. FALITHROM [Concomitant]
     Active Substance: PHENPROCOUMON
     Indication: THROMBOSIS PROPHYLAXIS
     Dosage: 3 MG, Q3W (EVERY 3 WEEKS) / 1.5 MG, Q4W (4 IMES A WEEK)
     Route: 048
     Dates: start: 20140201
  3. RAMIPRIL. [Concomitant]
     Active Substance: RAMIPRIL
     Indication: PRODUCT USED FOR UNKNOWN INDICATION
     Dosage: 5 MG, QD (ONCE DAILY)
     Route: 048
     Dates: start: 20171201
  4. MOMETASON [Concomitant]
     Active Substance: MOMETASONE FUROATE
     Indication: PRODUCT USED FOR UNKNOWN INDICATION
     Dosage: 10 G, QD
     Route: 061
     Dates: start: 20180119
  5. TAFINLAR [Suspect]
     Active Substance: DABRAFENIB MESYLATE
     Indication: METASTATIC MALIGNANT MELANOMA
     Dosage: 150 MG, BID
     Route: 048
     Dates: start: 20170803, end: 20190407
  6. CETIRIZINE [Concomitant]
     Active Substance: CETIRIZINE HYDROCHLORIDE
     Indication: PRODUCT USED FOR UNKNOWN INDICATION
     Dosage: 10 MG, QID (4 TIMES A DAY)
     Route: 048
     Dates: start: 20180119
  7. PEMBROLIZUMAB. [Suspect]
     Active Substance: PEMBROLIZUMAB
     Dosage: 120 MG, Q3W
     Route: 042
     Dates: start: 20170803
  8. BISPROL [Concomitant]
     Indication: PRODUCT USED FOR UNKNOWN INDICATION
     Dosage: 10 MG, QD (ONCE DAILY)
     Route: 048
     Dates: start: 20010801
  9. LIPROLOG [Concomitant]
     Active Substance: INSULIN LISPRO
     Indication: PRODUCT USED FOR UNKNOWN INDICATION
     Dosage: UNK, TID
     Route: 058
  10. TRAMETINIB [Suspect]
     Active Substance: TRAMETINIB
     Indication: METASTATIC MALIGNANT MELANOMA
     Dosage: 2 MG, QD
     Route: 048
     Dates: start: 20170803, end: 20190407
  11. PANTOZOL [Concomitant]
     Active Substance: PANTOPRAZOLE SODIUM
     Indication: PRODUCT USED FOR UNKNOWN INDICATION
     Dosage: 40 MG, BID
     Route: 042
     Dates: start: 20180616, end: 20180619
  12. FENISTIL [Concomitant]
     Active Substance: DIMETHINDENE
     Dosage: 1 MG, TID
     Route: 048
     Dates: start: 20180720
  13. RANITIDINE. [Concomitant]
     Active Substance: RANITIDINE
     Indication: PRODUCT USED FOR UNKNOWN INDICATION
     Dosage: 150 MG, QD (ONCE DAILY)
     Route: 048
     Dates: start: 20101201
  14. FENISTIL [Concomitant]
     Active Substance: DIMETHINDENE
     Indication: PRODUCT USED FOR UNKNOWN INDICATION
     Dosage: 1 MG, PRN
     Route: 048
     Dates: start: 20180419, end: 20180529
  15. PANTOZOL [Concomitant]
     Active Substance: PANTOPRAZOLE SODIUM
     Dosage: 40 UNK
     Route: 048

REACTIONS (9)
  - Gastrointestinal haemorrhage [Unknown]
  - Limb injury [Recovered/Resolved with Sequelae]
  - Malignant neoplasm progression [Fatal]
  - Gastroduodenal ulcer [Unknown]
  - Abdomen crushing [Unknown]
  - Gastric ulcer haemorrhage [Recovered/Resolved]
  - Metastatic malignant melanoma [Fatal]
  - Product use issue [Unknown]
  - Peptic ulcer [Unknown]

NARRATIVE: CASE EVENT DATE: 20170803
